FAERS Safety Report 5849829-3 (Version None)
Quarter: 2008Q3

REPORT INFORMATION
  Report Type: 
  Country: None (occurrence: None)
  Receive Date: 20080818
  Receipt Date: 20080818
  Transmission Date: 20090109
  Serious: Yes (Other)
  Sender: FDA-Public Use
  Company Number: None

PATIENT
  Age: 22 Year
  Sex: Female
  Weight: 56.6996 kg

DRUGS (2)
  1. NUVARING [Suspect]
     Indication: CONTRACEPTION
     Dosage: 0.120MG/0.015 PER DAY 1 RING FOR 3 WEEKS VAG
     Route: 067
     Dates: start: 20080719, end: 20080809
  2. NUVARING [Suspect]
     Dates: start: 20080629, end: 20080712

REACTIONS (3)
  - IUCD COMPLICATION [None]
  - PENILE PAIN [None]
  - PENIS DISORDER [None]
